FAERS Safety Report 22170216 (Version 2)
Quarter: 2023Q2

REPORT INFORMATION
  Report Type: Other
  Country: JP (occurrence: None)
  Receive Date: 20230404
  Receipt Date: 20230515
  Transmission Date: 20230721
  Serious: Yes (Other)
  Sender: FDA-Public Use
  Company Number: JP-ROCHE-3323806

PATIENT
  Age: 10 Year
  Sex: Female

DRUGS (2)
  1. RITUXIMAB [Suspect]
     Active Substance: RITUXIMAB
     Indication: Evans syndrome
     Route: 042
  2. PREDNISOLONE [Concomitant]
     Active Substance: PREDNISOLONE

REACTIONS (5)
  - Posterior reversible encephalopathy syndrome [Recovering/Resolving]
  - Hypoxia [Unknown]
  - Cardiac failure acute [Unknown]
  - Blood pressure increased [Unknown]
  - Off label use [Unknown]
